FAERS Safety Report 24780341 (Version 1)
Quarter: 2024Q4

REPORT INFORMATION
  Report Type: Spontaneous
  Country: RU (occurrence: RU)
  Receive Date: 20241227
  Receipt Date: 20241227
  Transmission Date: 20250115
  Serious: Yes (Life-Threatening, Hospitalization)
  Sender: SANDOZ
  Company Number: RU-SANDOZ-SDZ2024RU105505

PATIENT
  Sex: Male
  Weight: 75 kg

DRUGS (2)
  1. AMOXICILLIN\CLAVULANATE POTASSIUM [Suspect]
     Active Substance: AMOXICILLIN\CLAVULANATE POTASSIUM
     Indication: Transurethral bladder resection
     Dosage: 1000 MG+200 MG INTRAVENOUS JET
     Route: 042
     Dates: start: 20240926, end: 20240926
  2. GOSERELIN [Concomitant]
     Active Substance: GOSERELIN
     Indication: Hormone therapy
     Dosage: UNK
     Route: 065
     Dates: start: 20240922

REACTIONS (3)
  - Anaphylactic shock [Recovered/Resolved]
  - Prostate cancer [Recovered/Resolved]
  - Hypoxia [Recovered/Resolved]

NARRATIVE: CASE EVENT DATE: 20240926
